FAERS Safety Report 7716461-6 (Version None)
Quarter: 2011Q3

REPORT INFORMATION
  Report Type: 
  Country: None (occurrence: None)
  Receive Date: 20110829
  Receipt Date: 20110825
  Transmission Date: 20111222
  Serious: Yes (Death, Other)
  Sender: FDA-Public Use
  Company Number: PHEH2008US08951

PATIENT
  Sex: Female

DRUGS (78)
  1. ZOMETA [Suspect]
     Dosage: 4 MG, QMO
     Dates: start: 20020101, end: 20050210
  2. AREDIA [Suspect]
     Indication: METASTASES TO BONE
     Dosage: 90 MG, UNK
     Dates: start: 19980101, end: 20010101
  3. PROTONIX [Concomitant]
  4. PROCRIT                            /00909301/ [Concomitant]
     Dosage: 40,0000  / WEEKLY
     Route: 058
  5. PHENERGAN [Concomitant]
     Dosage: 25 MG
  6. ZYPREXA [Concomitant]
     Dosage: UNK
  7. PERCOCET [Concomitant]
     Dosage: 10/325 / EVERY 4 HOURS
  8. COMPAZINE [Concomitant]
     Dosage: UNK
  9. DIPHENHYDRAMINE HYDROCHLORIDE [Concomitant]
  10. LORTAB [Concomitant]
  11. POTASSIUM [Concomitant]
  12. RADIATION [Concomitant]
     Indication: METASTASES TO BONE
  13. HERCEPTIN [Concomitant]
     Dosage: 140 MG, UNK
     Dates: end: 20050101
  14. ARANESP [Concomitant]
  15. ADRIAMYCIN PFS [Concomitant]
  16. CIPRO [Concomitant]
     Dosage: 500 MG, BID
     Route: 048
  17. ACTIQ [Concomitant]
  18. DECADRON [Concomitant]
     Dosage: UNK
  19. MORPHINE SULFATE [Concomitant]
  20. ROXANOL [Concomitant]
  21. METHADONE HCL [Concomitant]
     Dosage: 20 MG / EVERY 3 HOURS
  22. TAXOTERE [Concomitant]
     Dosage: 90 MG, UNK
  23. ARIMIDEX [Concomitant]
  24. MEGACE [Concomitant]
  25. ADVIL LIQUI-GELS [Concomitant]
     Dosage: UNK
  26. SALAGEN [Concomitant]
     Dosage: UNK
  27. FAMOTIDINE [Concomitant]
  28. AMOXICILLIN [Concomitant]
  29. DEXAMETHASONE [Concomitant]
  30. TORADOL [Concomitant]
  31. VICODIN [Concomitant]
  32. AMOXICILLIN [Concomitant]
  33. CARBOPLATIN [Concomitant]
     Dosage: UNK
     Dates: end: 20040105
  34. CYTOXAN [Concomitant]
  35. MIRALAX [Concomitant]
     Dosage: UNK
  36. DILAUDID [Concomitant]
     Dosage: 4 MG / AS NEEDED
  37. PROZAC [Concomitant]
     Dosage: UNK
  38. PROPOFOL [Concomitant]
  39. TORECAN [Concomitant]
  40. ANZEMET [Concomitant]
  41. ALBUTEROL SULFATE AUTOHALER [Concomitant]
  42. OMEPRAZOLE [Concomitant]
  43. COUMADIN [Concomitant]
  44. GEMZAR [Concomitant]
  45. DEMEROL [Concomitant]
     Dosage: 50 MG
  46. ZOFRAN [Concomitant]
     Dosage: UNK
  47. DOLOPHINE HCL [Concomitant]
  48. ZOMETA [Suspect]
     Dosage: UNK
     Dates: start: 20070701, end: 20070801
  49. CHEMOTHERAPEUTICS NOS [Concomitant]
     Indication: METASTASES TO BONE
     Dosage: UNK
     Dates: start: 19980801
  50. CARBOPLATIN [Concomitant]
  51. NAVELBINE [Concomitant]
  52. XELODA [Concomitant]
  53. FEMARA [Concomitant]
  54. TEMAZEPAM [Concomitant]
     Dosage: UNK
  55. AUGMENTAN ORAL [Concomitant]
     Dosage: UNK
  56. HALOPERIDOL LACTATE [Concomitant]
  57. NAPROXEN [Concomitant]
  58. ATIVAN [Concomitant]
  59. FASLODEX [Concomitant]
  60. NEULASTA [Concomitant]
  61. MUCINEX DM [Concomitant]
     Dosage: UNK
  62. EFEXOR                                  /USA/ [Concomitant]
     Dosage: UNK
  63. DOCUSATE SODIUM [Concomitant]
     Dosage: UNK
  64. INDOCIN - SLOW RELEASE [Concomitant]
     Dosage: UNK
  65. VIOXX [Concomitant]
     Dosage: UNK
  66. MOTRIN [Concomitant]
  67. FLUZONE [Concomitant]
  68. NEURONTIN [Concomitant]
  69. ENULOSE [Concomitant]
  70. DURAGESIC-100 [Concomitant]
     Dosage: 50 MCG / EVERY 3 DAYS
  71. SYNTHROID [Concomitant]
     Dosage: 10 MG
  72. POLYETHYLENE GLYCOL [Concomitant]
  73. LYRICA [Concomitant]
  74. TRASTUZUMAB [Concomitant]
  75. FENTANYL CITRATE [Concomitant]
  76. MIDAZOLAM HYDROCHLORIDE [Concomitant]
  77. DARVOCET-N 50 [Concomitant]
  78. ZOFRAN [Concomitant]

REACTIONS (75)
  - WHITE BLOOD CELL COUNT [None]
  - BONE MARROW FAILURE [None]
  - HYPERSOMNIA [None]
  - BRACHIAL PLEXOPATHY [None]
  - CHEST PAIN [None]
  - AMNESIA [None]
  - TREMOR [None]
  - WEIGHT DECREASED [None]
  - MASTICATION DISORDER [None]
  - PAIN [None]
  - SENSITIVITY OF TEETH [None]
  - DENTURE WEARER [None]
  - PANCYTOPENIA [None]
  - NECK PAIN [None]
  - ANAEMIA [None]
  - METASTASES TO BONE [None]
  - ANAEMIA OF MALIGNANT DISEASE [None]
  - URINE ANALYSIS [None]
  - BONE LESION [None]
  - STOMATITIS [None]
  - CIRCADIAN RHYTHM SLEEP DISORDER [None]
  - LIP DRY [None]
  - CHRONIC OBSTRUCTIVE PULMONARY DISEASE [None]
  - OSTEONECROSIS OF JAW [None]
  - BREAST CANCER METASTATIC [None]
  - VOMITING [None]
  - OSTEOARTHRITIS [None]
  - BACTERIAL TEST NEGATIVE [None]
  - DYSPNOEA [None]
  - ADRENAL ADENOMA [None]
  - NEOPLASM MALIGNANT [None]
  - DEATH [None]
  - RECTAL HAEMORRHAGE [None]
  - INJURY [None]
  - ANXIETY [None]
  - GASTRITIS [None]
  - MUSCULOSKELETAL PAIN [None]
  - COLONIC STENOSIS [None]
  - BLOOD POTASSIUM DECREASED [None]
  - NEUROPATHY PERIPHERAL [None]
  - HYPOTHYROIDISM [None]
  - HEART RATE IRREGULAR [None]
  - TOOTHACHE [None]
  - IMPAIRED HEALING [None]
  - DENTAL CARIES [None]
  - CERVICAL SPINAL STENOSIS [None]
  - DEPRESSION [None]
  - PYREXIA [None]
  - RED BLOOD CELLS URINE [None]
  - GRANULOCYTOPENIA [None]
  - TOOTH ABSCESS [None]
  - RESPIRATORY TRACT INFECTION [None]
  - MUSCULOSKELETAL STIFFNESS [None]
  - SYNCOPE [None]
  - PANCOAST'S TUMOUR [None]
  - DISABILITY [None]
  - AXILLARY MASS [None]
  - ATTENTION DEFICIT/HYPERACTIVITY DISORDER [None]
  - FATIGUE [None]
  - BONE DISORDER [None]
  - NAUSEA [None]
  - BACK PAIN [None]
  - MALNUTRITION [None]
  - COMPRESSION FRACTURE [None]
  - SPINAL OSTEOARTHRITIS [None]
  - INTERVERTEBRAL DISC PROTRUSION [None]
  - DEAFNESS [None]
  - ARTERIOSCLEROSIS [None]
  - NEURALGIA [None]
  - FASCIITIS [None]
  - URINARY INCONTINENCE [None]
  - EMPHYSEMA [None]
  - ANHEDONIA [None]
  - URINARY TRACT INFECTION [None]
  - PRODUCTIVE COUGH [None]
